FAERS Safety Report 26100036 (Version 1)
Quarter: 2025Q4

REPORT INFORMATION
  Report Type: Spontaneous
  Country: US (occurrence: US)
  Receive Date: 20251128
  Receipt Date: 20251128
  Transmission Date: 20260118
  Serious: Yes (Other)
  Sender: SANDOZ
  Company Number: US-SANDOZ-SDZ2025US088562

PATIENT

DRUGS (2)
  1. IRON SUCROSE [Suspect]
     Active Substance: IRON SUCROSE
     Indication: Iron deficiency
     Dosage: 300 MG ONE SINGLE DOSE
     Route: 042
     Dates: start: 20251114, end: 20251114
  2. IRON SUCROSE [Suspect]
     Active Substance: IRON SUCROSE
     Dosage: 300 MG ONE SINGLE DOSE
     Route: 042
     Dates: start: 20251114, end: 20251114

REACTIONS (2)
  - Burning sensation [Recovering/Resolving]
  - Pruritus [Recovering/Resolving]

NARRATIVE: CASE EVENT DATE: 20251114
